FAERS Safety Report 17327444 (Version 2)
Quarter: 2020Q1

REPORT INFORMATION
  Report Type: Report from Study
  Country: AU (occurrence: AU)
  Receive Date: 20200127
  Receipt Date: 20200318
  Transmission Date: 20200409
  Serious: Yes (Other)
  Sender: FDA-Public Use
  Company Number: AU-JNJFOC-20200123923

PATIENT
  Age: 79 Year
  Sex: Male

DRUGS (1)
  1. STELARA [Suspect]
     Active Substance: USTEKINUMAB
     Indication: CROHN^S DISEASE
     Route: 042
     Dates: start: 20200115, end: 20200115

REACTIONS (4)
  - Surgery [Unknown]
  - Infusion related reaction [Unknown]
  - Heart rate irregular [Unknown]
  - Chest pain [Unknown]

NARRATIVE: CASE EVENT DATE: 20200115
